FAERS Safety Report 9485211 (Version 2)
Quarter: 2013Q3

REPORT INFORMATION
  Report Type: Spontaneous
  Country: US (occurrence: US)
  Receive Date: 20130828
  Receipt Date: 20130828
  Transmission Date: 20140515
  Serious: Yes (Other)
  Sender: FDA-Public Use
  Company Number: US-MERCK-2011SP019484

PATIENT
  Age: 73 Year
  Sex: Male

DRUGS (2)
  1. TEMODAL [Suspect]
     Indication: GLIOBLASTOMA
     Dosage: 75 MG/M2, QD, FOR SIX WEEKS
  2. TEMODAL [Suspect]
     Dosage: 200 MG/M2, QD

REACTIONS (2)
  - Plasmablastic lymphoma [Unknown]
  - Lesion excision [Unknown]
